FAERS Safety Report 7273274-X (Version None)
Quarter: 2011Q1

REPORT INFORMATION
  Report Type: 
  Country: None (occurrence: None)
  Receive Date: 20110203
  Receipt Date: 20101220
  Transmission Date: 20110831
  Serious: No
  Sender: FDA-Public Use
  Company Number: US-ABBOTT-10P-163-0693137-00

PATIENT
  Sex: Male

DRUGS (5)
  1. SYNTHROID [Suspect]
  2. SYNTHROID [Suspect]
     Indication: HYPOTHYROIDISM
     Dates: start: 20100701, end: 20101201
  3. SYNTHROID [Suspect]
  4. SYNTHROID [Suspect]
     Indication: HYPOTHYROIDISM
     Dates: start: 20100601, end: 20100701
  5. SYNTHROID [Suspect]
     Indication: HYPOTHYROIDISM
     Dates: start: 20101201

REACTIONS (2)
  - NAUSEA [None]
  - NO THERAPEUTIC RESPONSE [None]
